FAERS Safety Report 8096987-9 (Version None)
Quarter: 2012Q1

REPORT INFORMATION
  Report Type: 
  Country: None (occurrence: None)
  Receive Date: 20120129
  Receipt Date: 20111205
  Transmission Date: 20120608
  Serious: No
  Sender: FDA-Public Use
  Company Number: US-ABBOTT-11P-163-0880772-00

PATIENT
  Age: 69 Year
  Sex: Male

DRUGS (4)
  1. LUMIGAN [Concomitant]
     Indication: GLAUCOMA
     Dosage: IN LEFT EYE DAILY
  2. PREDNISONE TAB [Concomitant]
     Indication: ARTHRITIS
     Route: 048
     Dates: start: 20111024
  3. HUMIRA [Suspect]
     Indication: PSORIATIC ARTHROPATHY
     Dates: start: 20111027
  4. COSOPT [Concomitant]
     Indication: GLAUCOMA
     Dosage: ONE DROP IN EACH EYE TWICE DAILY

REACTIONS (7)
  - INJECTION SITE PRURITUS [None]
  - PSORIASIS [None]
  - RASH MACULAR [None]
  - URTICARIA [None]
  - INJECTION SITE ERYTHEMA [None]
  - INJECTION SITE SWELLING [None]
  - RASH PRURITIC [None]
